FAERS Safety Report 8518735-8 (Version None)
Quarter: 2012Q3

REPORT INFORMATION
  Report Type: 
  Country: None (occurrence: None)
  Receive Date: 20120718
  Receipt Date: 20120709
  Transmission Date: 20120928
  Serious: Yes (Hospitalization, Other)
  Sender: FDA-Public Use
  Company Number: PHHY2011CA72264

PATIENT
  Sex: Female

DRUGS (2)
  1. SANDOSTATIN LAR [Suspect]
     Indication: NEUROENDOCRINE TUMOUR
     Dosage: 20 MG, EVERY 3 WEEKS
     Route: 030
     Dates: start: 20101109
  2. SANDOSTATIN LAR [Suspect]
     Dosage: 20 MG, QMO
     Route: 030
     Dates: start: 20101109

REACTIONS (5)
  - ABDOMINAL PAIN [None]
  - NEOPLASM [None]
  - BACK PAIN [None]
  - OEDEMA PERIPHERAL [None]
  - INTESTINAL OBSTRUCTION [None]
